FAERS Safety Report 5363718-2 (Version None)
Quarter: 2007Q2

REPORT INFORMATION
  Report Type: 
  Country: None (occurrence: None)
  Receive Date: 20070620
  Receipt Date: 20070611
  Transmission Date: 20071010
  Serious: Yes (Hospitalization)
  Sender: FDA-Public Use
  Company Number: PHHO2006US09809

PATIENT
  Sex: Female
  Weight: 82 kg

DRUGS (3)
  1. ZOLEDRONATE V'S NO TREATMENT [Suspect]
     Indication: BREAST CANCER
     Dosage: 4 MG EVERY 3 MONTHS
     Route: 042
     Dates: start: 20050919
  2. VITAMIN D [Concomitant]
  3. CALCIUM CHLORIDE [Concomitant]

REACTIONS (3)
  - FACE INJURY [None]
  - LACERATION [None]
  - OSTEONECROSIS [None]
